FAERS Safety Report 19449383 (Version 2)
Quarter: 2021Q3

REPORT INFORMATION
  Report Type: Spontaneous
  Country: US (occurrence: US)
  Receive Date: 20210622
  Receipt Date: 20210913
  Transmission Date: 20211014
  Serious: Yes (Death, Hospitalization)
  Sender: FDA-Public Use
  Company Number: US-ELI_LILLY_AND_COMPANY-US202106009856

PATIENT
  Age: 62 Year
  Sex: Female
  Weight: 123 kg

DRUGS (10)
  1. ETESEVIMAB 700MG [Suspect]
     Active Substance: ETESEVIMAB
     Indication: COVID-19
     Dosage: 1400 MG, SINGLE
     Route: 042
     Dates: start: 20210415, end: 20210415
  2. TESSALON [Concomitant]
     Active Substance: BENZONATATE
     Dosage: 100 MG, 3 TIMES DAILY
     Route: 048
  3. VASCEPA [Concomitant]
     Active Substance: ICOSAPENT ETHYL
     Dosage: 1 GRAM, DAILY
     Route: 048
  4. MEVACOR [Concomitant]
     Active Substance: LOVASTATIN
     Dosage: 40 MG, DAILY
     Route: 048
  5. FARXIGA [Concomitant]
     Active Substance: DAPAGLIFLOZIN PROPANEDIOL
     Dosage: 10 MG, DAILY
     Route: 048
  6. FENOGLIDE [Concomitant]
     Active Substance: FENOFIBRATE
     Dosage: 160 MG, DAILY
     Route: 048
  7. OXYGEN. [Concomitant]
     Active Substance: OXYGEN
     Dosage: 2 L, UNKNOWN
     Route: 065
  8. BAMLANIVIMAB 700MG [Suspect]
     Active Substance: BAMLANIVIMAB
     Indication: COVID-19
     Dosage: 700 MG, SINGLE
     Route: 042
     Dates: start: 20210415, end: 20210415
  9. VICTOZA [Concomitant]
     Active Substance: LIRAGLUTIDE
     Dosage: 1.8 MG, DAILY
     Route: 058
  10. MEDROL [Concomitant]
     Active Substance: METHYLPREDNISOLONE
     Dosage: UNK, UNKNOWN
     Route: 065

REACTIONS (3)
  - COVID-19 pneumonia [Fatal]
  - Urinary tract infection [Unknown]
  - Acute respiratory failure [Fatal]

NARRATIVE: CASE EVENT DATE: 20210416
